FAERS Safety Report 8115755-2 (Version None)
Quarter: 2012Q1

REPORT INFORMATION
  Report Type: 
  Country: None (occurrence: None)
  Receive Date: 20120201
  Receipt Date: 20120119
  Transmission Date: 20120608
  Serious: Yes (Life-Threatening, Other)
  Sender: FDA-Public Use
  Company Number: GER/GER/12/0022800

PATIENT
  Age: 54 Year
  Sex: Male
  Weight: 99 kg

DRUGS (7)
  1. METFORMIN HCL [Suspect]
     Indication: DIABETES MELLITUS
     Dosage: ORAL
     Route: 048
     Dates: start: 19981101
  2. SOTALOL HCL [Concomitant]
  3. ADALAT 10 KAPSELN (NIFEDIPINE) [Concomitant]
  4. ISOKET 5 SUBLINGUALTABLETTEN (ISOSORBIDE DINITRATE) [Concomitant]
  5. FUROSEMIDE [Concomitant]
  6. NOVODIGAL TABLETTEN (DIGOXIN) [Concomitant]
  7. CAPTOPRIL [Concomitant]

REACTIONS (6)
  - HYPERKALAEMIA [None]
  - RENAL FAILURE [None]
  - RESPIRATORY FAILURE [None]
  - BRADYCARDIA [None]
  - ARRHYTHMIA [None]
  - LACTIC ACIDOSIS [None]
